FAERS Safety Report 7629442-8 (Version None)
Quarter: 2011Q3

REPORT INFORMATION
  Report Type: 
  Country: None (occurrence: None)
  Receive Date: 20110714
  Receipt Date: 20110707
  Transmission Date: 20111222
  Serious: Yes (Other)
  Sender: FDA-Public Use
  Company Number: 2011SP031776

PATIENT
  Sex: Female

DRUGS (1)
  1. SAPHRIS [Suspect]
     Indication: BIPOLAR DISORDER
     Dosage: 5 MG;HS

REACTIONS (6)
  - CHEST DISCOMFORT [None]
  - PALPITATIONS [None]
  - ASTHENIA [None]
  - DIZZINESS POSTURAL [None]
  - PARANOIA [None]
  - ANXIETY [None]
